FAERS Safety Report 12626984 (Version 1)
Quarter: 2016Q3

REPORT INFORMATION
  Report Type: Report from Study
  Country: US (occurrence: US)
  Receive Date: 20160805
  Receipt Date: 20160805
  Transmission Date: 20161109
  Serious: Yes (Death, Other)
  Sender: FDA-Public Use
  Company Number: US-ASTRAZENECA-2015SF05866

PATIENT
  Age: 16699 Day
  Sex: Female

DRUGS (1)
  1. LYNPARZA [Suspect]
     Active Substance: OLAPARIB
     Indication: FALLOPIAN TUBE CANCER
     Route: 048
     Dates: start: 20150919

REACTIONS (9)
  - Dyspnoea [Unknown]
  - Product use issue [Unknown]
  - Death [Fatal]
  - Malignant neoplasm progression [Unknown]
  - Thrombocytopenia [Recovered/Resolved]
  - Nasopharyngitis [Unknown]
  - Dysphonia [Unknown]
  - Chills [Unknown]
  - Off label use [Unknown]

NARRATIVE: CASE EVENT DATE: 20150822
